FAERS Safety Report 17174145 (Version 1)
Quarter: 2019Q4

REPORT INFORMATION
  Report Type: Spontaneous
  Country: DE (occurrence: DE)
  Receive Date: 20191219
  Receipt Date: 20191219
  Transmission Date: 20200122
  Serious: Yes (Other)
  Sender: FDA-Public Use
  Company Number: DE-BRISTOL-MYERS SQUIBB COMPANY-BMS-2019-103065

PATIENT
  Age: 52 Year
  Sex: Female

DRUGS (2)
  1. MTX [METHOTREXATE] [Suspect]
     Active Substance: METHOTREXATE SODIUM
     Indication: PSORIATIC ARTHROPATHY
     Dosage: UNK
     Route: 065
  2. ORENCIA [Suspect]
     Active Substance: ABATACEPT
     Indication: PSORIATIC ARTHROPATHY
     Dosage: UNK
     Route: 065

REACTIONS (8)
  - Depression [Recovered/Resolved]
  - Alopecia [Not Recovered/Not Resolved]
  - Influenza like illness [Unknown]
  - Crying [Unknown]
  - Weight increased [Unknown]
  - Aggression [Unknown]
  - Suicidal ideation [Unknown]
  - Drug ineffective [Unknown]
